FAERS Safety Report 7979277-1 (Version None)
Quarter: 2011Q4

REPORT INFORMATION
  Report Type: 
  Country: None (occurrence: None)
  Receive Date: 20111201
  Receipt Date: 20111117
  Transmission Date: 20120403
  Serious: Yes (Hospitalization, Disabling)
  Sender: FDA-Public Use
  Company Number: 2009AL004166

PATIENT
  Age: 63 Year
  Sex: Male
  Weight: 73.3466 kg

DRUGS (62)
  1. METOPROLOL TARTRATE [Concomitant]
  2. ANDROGEL [Concomitant]
  3. DESYRL [Concomitant]
  4. NITROGLYCERIN [Concomitant]
  5. PROZAC [Concomitant]
  6. ZYRTEC [Concomitant]
  7. GLYCOLAX [Concomitant]
  8. REGLAN [Concomitant]
  9. FENTANYL [Concomitant]
  10. CYMBALTA [Concomitant]
  11. DEMEROL [Concomitant]
  12. PLAVIX [Concomitant]
  13. TESTIM [Concomitant]
  14. NITROGLYCERIN [Concomitant]
  15. OMEPRAZOLE [Concomitant]
  16. MECLIZINE [Concomitant]
  17. HYDROCODONE BITARTRATE [Concomitant]
  18. EFFEXOR XR [Concomitant]
  19. FLEXERIL [Concomitant]
  20. HEPARIN [Concomitant]
  21. MILK OF MAGNESIA TAB [Concomitant]
  22. MONOPRIL [Concomitant]
  23. NEXIUM [Concomitant]
  24. TAVIST [Concomitant]
  25. VYTORIN [Concomitant]
  26. ASPIRIN [Concomitant]
  27. CEPHALEXIN [Concomitant]
  28. ALLEGRA [Concomitant]
  29. NORCO [Concomitant]
  30. TESTOSTERONE CYPIONATE [Concomitant]
  31. VITAMIN B-12 [Concomitant]
  32. ZOFRAN [Concomitant]
  33. DILAUDID [Concomitant]
  34. LOTRISONE [Concomitant]
  35. MIRALAX [Concomitant]
  36. PAMELAR [Concomitant]
  37. VITAMIN TAB [Concomitant]
  38. ZANTAC [Concomitant]
  39. FENTANYL-100 [Concomitant]
  40. AUGMENTIN [Concomitant]
  41. AFRIN [Concomitant]
  42. DURAGESIC-100 [Concomitant]
  43. MOTRIN [Concomitant]
  44. SPIRIVA [Concomitant]
  45. UROXATRAL [Concomitant]
  46. OXYCODONE HCL [Concomitant]
  47. NABUMETONE [Concomitant]
  48. BOTOX [Concomitant]
  49. DARVOCET [Concomitant]
  50. DURACT [Concomitant]
  51. FOSAMAX [Concomitant]
  52. HYDROCODONE BITARTRATE AND ACETAMINOPHEN [Concomitant]
  53. ZOLOFT [Concomitant]
  54. DIGOXIN [Suspect]
     Indication: ATRIAL FIBRILLATION
     Dosage: 0.25 MG;QD;PO
     Route: 048
     Dates: start: 20070412, end: 20080501
  55. METOCLOPRAMIDE [Concomitant]
  56. NITROSTAT [Concomitant]
  57. ANTIVERT [Concomitant]
  58. COUMADIN [Concomitant]
  59. LODINE [Concomitant]
  60. LOPRESSOR [Concomitant]
  61. NORVASC [Concomitant]
  62. PRILOSEC [Concomitant]

REACTIONS (63)
  - ABDOMINAL DISTENSION [None]
  - CYST [None]
  - CHAPPED LIPS [None]
  - FALL [None]
  - OESOPHAGEAL ACHALASIA [None]
  - SINUS BRADYCARDIA [None]
  - VENTRICULAR EXTRASYSTOLES [None]
  - ADRENAL ADENOMA [None]
  - CORONARY ARTERY DISEASE [None]
  - DYSURIA [None]
  - INFLAMMATION [None]
  - DEPRESSION [None]
  - BODY TINEA [None]
  - CONTUSION [None]
  - RHINITIS ALLERGIC [None]
  - HYPOAESTHESIA [None]
  - ILIAC ARTERY STENOSIS [None]
  - GASTRIC ULCER [None]
  - ANGINA PECTORIS [None]
  - BACK PAIN [None]
  - IMPAIRED GASTRIC EMPTYING [None]
  - HAEMATURIA [None]
  - STRESS [None]
  - OSTEOPOROSIS [None]
  - DYSLIPIDAEMIA [None]
  - CONSTIPATION [None]
  - GASTRITIS [None]
  - RENAL CYST [None]
  - ANXIETY [None]
  - DECREASED APPETITE [None]
  - ASTHENIA [None]
  - MULTIPLE INJURIES [None]
  - SLEEP APNOEA SYNDROME [None]
  - HAEMATOMA [None]
  - INTERVERTEBRAL DISC DEGENERATION [None]
  - CARPAL TUNNEL SYNDROME [None]
  - SCOLIOSIS [None]
  - MITRAL VALVE INCOMPETENCE [None]
  - SINUS ARRHYTHMIA [None]
  - HEPATIC STEATOSIS [None]
  - HEPATIC CYST [None]
  - EPISTAXIS [None]
  - WEIGHT INCREASED [None]
  - ABDOMINAL PAIN [None]
  - FLANK PAIN [None]
  - HYPOGONADISM [None]
  - MITRAL VALVE PROLAPSE [None]
  - SPLENIC CYST [None]
  - TRICUSPID VALVE INCOMPETENCE [None]
  - ATRIAL FIBRILLATION [None]
  - COLONIC POLYP [None]
  - OSTEOARTHRITIS [None]
  - BENIGN PROSTATIC HYPERPLASIA [None]
  - CHEILOSIS [None]
  - HYPERTENSION [None]
  - MUSCLE SPASMS [None]
  - MUSCULAR WEAKNESS [None]
  - CARDIAC MURMUR [None]
  - ECONOMIC PROBLEM [None]
  - PAIN [None]
  - OESOPHAGITIS [None]
  - GASTROOESOPHAGEAL REFLUX DISEASE [None]
  - DIVERTICULUM [None]
